FAERS Safety Report 5615420-7 (Version None)
Quarter: 2008Q1

REPORT INFORMATION
  Report Type: 
  Country: None (occurrence: None)
  Receive Date: 20080131
  Receipt Date: 20080121
  Transmission Date: 20080703
  Serious: Yes (Hospitalization)
  Sender: FDA-Public Use
  Company Number: 20080015/

PATIENT
  Age: 43 Year
  Sex: Female

DRUGS (1)
  1. VENOFER [Suspect]
     Dosage: 300 MG INTRAVENOUS
     Route: 042
     Dates: start: 20070513, end: 20070515

REACTIONS (1)
  - THROMBOPHLEBITIS SUPERFICIAL [None]
